FAERS Safety Report 5218153-4 (Version None)
Quarter: 2007Q1

REPORT INFORMATION
  Report Type: 
  Country: None (occurrence: None)
  Receive Date: 20061130
  Receipt Date: 20060912
  Transmission Date: 20070707
  Serious: Yes (Other)
  Sender: FDA-Public Use
  Company Number: US200609003292

PATIENT
  Age: 81 Year
  Sex: Male

DRUGS (1)
  1. ZYPREXA [Suspect]
     Indication: DRUG USE FOR UNKNOWN INDICATION
     Dosage: ORAL
     Route: 048
     Dates: start: 20060101

REACTIONS (5)
  - AGGRESSION [None]
  - CONFUSIONAL STATE [None]
  - OEDEMA PERIPHERAL [None]
  - PARANOIA [None]
  - PNEUMONIA [None]
